FAERS Safety Report 16748805 (Version 1)
Quarter: 2019Q3

REPORT INFORMATION
  Report Type: Spontaneous
  Country: US (occurrence: US)
  Receive Date: 20190709
  Receipt Date: 20190709
  Transmission Date: 20191005
  Serious: No
  Sender: FDA-Public Use
  Company Number: None

PATIENT
  Age: 35 Year
  Sex: Male
  Weight: 108.86 kg

DRUGS (1)
  1. HALDOL [Suspect]
     Active Substance: HALOPERIDOL
     Indication: ANGER
     Route: 058
     Dates: start: 20030908, end: 20030908

REACTIONS (2)
  - Condition aggravated [None]
  - Injury [None]

NARRATIVE: CASE EVENT DATE: 20030908
